FAERS Safety Report 25891971 (Version 1)
Quarter: 2025Q4

REPORT INFORMATION
  Report Type: Other
  Country: IN (occurrence: IN)
  Receive Date: 20251007
  Receipt Date: 20251007
  Transmission Date: 20260118
  Serious: Yes (Other)
  Sender: COREPHARMA LLC
  Company Number: IN-CorePharma LLC-2186103

PATIENT
  Age: 23 Year
  Sex: Male

DRUGS (1)
  1. DEXAMETHASONE [Suspect]
     Active Substance: DEXAMETHASONE
     Indication: Hypersensitivity

REACTIONS (6)
  - Pseudo Cushing^s syndrome [Unknown]
  - Intentional product misuse [Unknown]
  - Self-medication [Unknown]
  - Contusion [Unknown]
  - Body tinea [Unknown]
  - Hypothalamic pituitary adrenal axis suppression [Unknown]
